FAERS Safety Report 23242968 (Version 1)
Quarter: 2023Q4

REPORT INFORMATION
  Report Type: Spontaneous
  Country: US (occurrence: US)
  Receive Date: 20231129
  Receipt Date: 20231129
  Transmission Date: 20240109
  Serious: No
  Sender: FDA-Public Use
  Company Number: US-ABBVIE-5518597

PATIENT

DRUGS (1)
  1. BOTOX COSMETIC [Suspect]
     Active Substance: ONABOTULINUMTOXINA
     Indication: Product used for unknown indication
     Dosage: TIME INTERVAL: AS NECESSARY: 50 UNITS/VIAL
     Route: 065

REACTIONS (4)
  - Product preparation error [Unknown]
  - Drug ineffective [Unknown]
  - Product preparation issue [Unknown]
  - Wrong technique in product usage process [Unknown]
